FAERS Safety Report 16610541 (Version 1)
Quarter: 2019Q3

REPORT INFORMATION
  Report Type: Spontaneous
  Country: BE (occurrence: BE)
  Receive Date: 20190722
  Receipt Date: 20190722
  Transmission Date: 20191004
  Serious: Yes (Other)
  Sender: FDA-Public Use
  Company Number: BE-INDIVIOR LIMITED-INDV-120624-2019

PATIENT
  Sex: Female

DRUGS (1)
  1. SUBOXONE [Suspect]
     Active Substance: BUPRENORPHINE HYDROCHLORIDE\NALOXONE HYDROCHLORIDE
     Indication: BACK PAIN
     Dosage: 1 DOSAGE FORM
     Route: 048

REACTIONS (5)
  - Urinary retention [Unknown]
  - Decreased appetite [Unknown]
  - Somnolence [Unknown]
  - Substance abuse [Unknown]
  - Intentional product use issue [Unknown]
